FAERS Safety Report 6296055-2 (Version None)
Quarter: 2009Q3

REPORT INFORMATION
  Report Type: 
  Country: None (occurrence: None)
  Receive Date: 20090804
  Receipt Date: 20090723
  Transmission Date: 20100115
  Serious: Yes (Life-Threatening)
  Sender: FDA-Public Use
  Company Number: JP-PFIZER INC-2009236688

PATIENT
  Age: 59 Year

DRUGS (1)
  1. CEFOBID [Suspect]
     Indication: CELLULITIS
     Dosage: 1 G, 1X/DAY
     Route: 042
     Dates: start: 20090204, end: 20090630

REACTIONS (1)
  - ANAPHYLACTIC SHOCK [None]
